FAERS Safety Report 18327927 (Version 3)
Quarter: 2020Q4

REPORT INFORMATION
  Report Type: Report from Study
  Country: US (occurrence: US)
  Receive Date: 20200930
  Receipt Date: 20201231
  Transmission Date: 20210113
  Serious: No
  Sender: FDA-Public Use
  Company Number: NVSC2020US263796

PATIENT
  Sex: Female

DRUGS (1)
  1. ENTRESTO [Suspect]
     Active Substance: SACUBITRIL\VALSARTAN
     Indication: CARDIAC FAILURE
     Dosage: 100 MG, BID (49/51 MG)
     Route: 048
     Dates: start: 202008

REACTIONS (4)
  - Weight increased [Unknown]
  - Decreased activity [Unknown]
  - Chest discomfort [Unknown]
  - Blood potassium increased [Recovering/Resolving]
